FAERS Safety Report 7141266-7 (Version None)
Quarter: 2010Q4

REPORT INFORMATION
  Report Type: 
  Country: None (occurrence: None)
  Receive Date: 20101207
  Receipt Date: 20101130
  Transmission Date: 20110411
  Serious: Yes (Hospitalization)
  Sender: FDA-Public Use
  Company Number: IT-BRISTOL-MYERS SQUIBB COMPANY-15418130

PATIENT
  Age: 60 Year
  Sex: Male

DRUGS (5)
  1. COUMADIN [Suspect]
     Dosage: 1DF:2 POSOLOGIC UNIT INTERRUPTED ON 01FEB2010
     Dates: start: 20091001
  2. CORDARONE [Suspect]
     Dosage: 1DF: 1 POSOLOGIC UNIT INTERRUPTED ON 01FEB2010
     Dates: start: 20091001
  3. LASIX [Concomitant]
  4. PROVISACOR [Concomitant]
  5. GLIBOMET [Concomitant]

REACTIONS (2)
  - HAEMATOMA [None]
  - THYROID FUNCTION TEST ABNORMAL [None]
